FAERS Safety Report 22042152 (Version 1)
Quarter: 2023Q1

REPORT INFORMATION
  Report Type: Report from Study
  Country: CO (occurrence: CO)
  Receive Date: 20230227
  Receipt Date: 20230227
  Transmission Date: 20230418
  Serious: Yes (Hospitalization)
  Sender: FDA-Public Use
  Company Number: CO-ABBVIE-4320090

PATIENT
  Sex: Male
  Weight: 60 kg

DRUGS (2)
  1. SKYRIZI [Suspect]
     Active Substance: RISANKIZUMAB-RZAA
     Indication: Psoriasis
     Dosage: FORM STRENGTH: 75 MG
     Route: 058
     Dates: start: 20211213, end: 20221124
  2. PRAZOMEROL [Concomitant]
     Indication: Product used for unknown indication
     Route: 048
     Dates: start: 20230222

REACTIONS (4)
  - Gastrointestinal haemorrhage [Recovering/Resolving]
  - Gastritis erosive [Recovering/Resolving]
  - Gastrooesophageal reflux disease [Recovering/Resolving]
  - Haemorrhoids [Unknown]

NARRATIVE: CASE EVENT DATE: 20230101
